FAERS Safety Report 17758098 (Version 1)
Quarter: 2020Q2

REPORT INFORMATION
  Report Type: Spontaneous
  Country: FR (occurrence: FR)
  Receive Date: 20200507
  Receipt Date: 20200507
  Transmission Date: 20200714
  Serious: Yes (Other)
  Sender: FDA-Public Use
  Company Number: FR-JNJFOC-20200436893

PATIENT
  Age: 56 Year
  Sex: Female

DRUGS (5)
  1. XEPLION [Suspect]
     Active Substance: PALIPERIDONE PALMITATE
     Indication: PRODUCT USED FOR UNKNOWN INDICATION
     Dosage: DAY 1 DOSE
     Route: 030
  2. RISPERDAL [Concomitant]
     Active Substance: RISPERIDONE
     Route: 048
  3. XEPLION [Suspect]
     Active Substance: PALIPERIDONE PALMITATE
     Dosage: GIVEN AFTER 3 WEEKS
     Route: 030
  4. XEPLION [Suspect]
     Active Substance: PALIPERIDONE PALMITATE
     Dosage: DAY 8 DOSE
     Route: 030
  5. RISPERDAL [Concomitant]
     Active Substance: RISPERIDONE
     Route: 048

REACTIONS (3)
  - Inappropriate schedule of product administration [Unknown]
  - Off label use [Unknown]
  - Delirium [Unknown]
